FAERS Safety Report 10308272 (Version 3)
Quarter: 2014Q3

REPORT INFORMATION
  Report Type: Report from Study
  Country: US (occurrence: US)
  Receive Date: 20140716
  Receipt Date: 20140826
  Transmission Date: 20150326
  Serious: Yes (Other)
  Sender: FDA-Public Use
  Company Number: US-SA-2014SA061233

PATIENT
  Age: 50 Year
  Sex: Female

DRUGS (2)
  1. AUBAGIO [Suspect]
     Active Substance: TERIFLUNOMIDE
     Indication: MULTIPLE SCLEROSIS
     Route: 048
     Dates: start: 20140425
  2. AUBAGIO [Suspect]
     Active Substance: TERIFLUNOMIDE
     Indication: MULTIPLE SCLEROSIS
     Dosage: START DATE: 08-MAY-2014  0R 09-MAY-2014 (PATIENT WAS NOT SURE)
     Route: 065
     Dates: start: 20140508, end: 20140522

REACTIONS (10)
  - Dyskinesia [Recovering/Resolving]
  - Urinary tract infection [Unknown]
  - Condition aggravated [Recovering/Resolving]
  - Asthenia [Recovering/Resolving]
  - Paraesthesia [Recovered/Resolved]
  - Oropharyngeal pain [Unknown]
  - Sleep disorder [Unknown]
  - Dizziness [Unknown]
  - Sinus disorder [Unknown]
  - Fatigue [Unknown]

NARRATIVE: CASE EVENT DATE: 2014
